FAERS Safety Report 4803316-X (Version None)
Quarter: 2005Q3

REPORT INFORMATION
  Report Type: 
  Country: None (occurrence: None)
  Receive Date: 20050929
  Receipt Date: 20050815
  Transmission Date: 20060218
  Serious: Yes (Hospitalization)
  Sender: FDA-Public Use
  Company Number: 05P-163-0308314-00

PATIENT
  Age: 54 Year
  Sex: Female

DRUGS (6)
  1. HUMIRA [Suspect]
     Indication: RHEUMATOID ARTHRITIS
     Dosage: 40 MG, 1 IN 10 D, SUBCUTANEOUS
     Route: 058
     Dates: start: 20030101, end: 20040501
  2. HUMIRA [Suspect]
     Indication: RHEUMATOID ARTHRITIS
     Dosage: 40 MG, 1 IN 10 D, SUBCUTANEOUS
     Route: 058
     Dates: start: 20040901, end: 20050201
  3. HUMIRA [Suspect]
     Indication: RHEUMATOID ARTHRITIS
     Dosage: 40 MG, 1 IN 10 D, SUBCUTANEOUS
     Route: 058
     Dates: start: 20050330, end: 20050401
  4. ATORVASTATIN CALCIUM [Concomitant]
  5. LEVOTHYROXINE SODIUM [Concomitant]
  6. SERTRALINE HYDROCHLORIDE [Concomitant]

REACTIONS (3)
  - ARTHRITIS BACTERIAL [None]
  - SINUSITIS [None]
  - SKIN LACERATION [None]
